FAERS Safety Report 25311565 (Version 3)
Quarter: 2025Q4

REPORT INFORMATION
  Report Type: Report from Study
  Country: EU (occurrence: EU)
  Receive Date: 20250514
  Receipt Date: 20251105
  Transmission Date: 20260117
  Serious: Yes (Death, Hospitalization, Other)
  Sender: TAKEDA
  Company Number: EU-TAKEDA-2025TUS045337

PATIENT
  Sex: Male

DRUGS (1)
  1. FRUQUINTINIB [Suspect]
     Active Substance: FRUQUINTINIB
     Indication: Colon cancer metastatic
     Dosage: 5 MILLIGRAM, QD
     Dates: start: 20250419, end: 20250423

REACTIONS (4)
  - Colon cancer metastatic [Fatal]
  - General physical health deterioration [Unknown]
  - Pain [Unknown]
  - Fatigue [Unknown]
